FAERS Safety Report 15947603 (Version 1)
Quarter: 2019Q1

REPORT INFORMATION
  Report Type: Spontaneous
  Country: US (occurrence: US)
  Receive Date: 20190211
  Receipt Date: 20190211
  Transmission Date: 20190417
  Serious: Yes (Other)
  Sender: FDA-Public Use
  Company Number: US-TAKEDA-2019TUS005617

PATIENT
  Age: 72 Year
  Sex: Female
  Weight: 82.09 kg

DRUGS (2)
  1. DEXILANT [Suspect]
     Active Substance: DEXLANSOPRAZOLE
     Indication: GASTROOESOPHAGEAL REFLUX DISEASE
     Dosage: 30 MILLIGRAM
     Route: 065
     Dates: start: 2013
  2. DEXILANT [Suspect]
     Active Substance: DEXLANSOPRAZOLE
     Indication: HIATUS HERNIA
     Dosage: 60 MILLIGRAM
     Route: 065

REACTIONS (4)
  - Body height decreased [Not Recovered/Not Resolved]
  - Spinal compression fracture [Not Recovered/Not Resolved]
  - Drug ineffective [Recovered/Resolved]
  - Osteoporosis [Not Recovered/Not Resolved]
